FAERS Safety Report 25590966 (Version 1)
Quarter: 2025Q3

REPORT INFORMATION
  Report Type: Report from Study
  Country: US (occurrence: US)
  Receive Date: 20250722
  Receipt Date: 20250722
  Transmission Date: 20251020
  Serious: Yes (Other)
  Sender: ALEXION PHARMACEUTICALS
  Company Number: US-AstraZeneca-CH-00909029A

PATIENT
  Age: 57 Year
  Sex: Female

DRUGS (1)
  1. CAPIVASERTIB [Suspect]
     Active Substance: CAPIVASERTIB
     Indication: Breast cancer female

REACTIONS (4)
  - Carbohydrate antigen 15-3 increased [Unknown]
  - Nausea [Unknown]
  - Abdominal discomfort [Unknown]
  - Oral pain [Unknown]
